FAERS Safety Report 4351932-4 (Version None)
Quarter: 2004Q2

REPORT INFORMATION
  Report Type: 
  Country: None (occurrence: None)
  Receive Date: 20040429
  Receipt Date: 20040128
  Transmission Date: 20050107
  Serious: No
  Sender: FDA-Public Use
  Company Number: 2004-112425-NL

PATIENT
  Sex: Female

DRUGS (2)
  1. NUVARING [Suspect]
     Dosage: DF DAILY
     Dates: start: 20030722, end: 20030101
  2. NUVARING [Suspect]
     Dosage: DF DAILY
     Dates: start: 20030901

REACTIONS (2)
  - MEDICAL DEVICE COMPLICATION [None]
  - UNINTENDED PREGNANCY [None]
